FAERS Safety Report 16306911 (Version 2)
Quarter: 2019Q2

REPORT INFORMATION
  Report Type: Report from Study
  Country: IL (occurrence: IL)
  Receive Date: 20190513
  Receipt Date: 20190517
  Transmission Date: 20190711
  Serious: Yes (Death, Hospitalization, Other)
  Sender: FDA-Public Use
  Company Number: IL-ACTELION-A-NJ2019-190361

PATIENT
  Age: 73 Year
  Sex: Female

DRUGS (1)
  1. VENTAVIS [Suspect]
     Active Substance: ILOPROST
     Indication: PULMONARY HYPERTENSION
     Dosage: UNK
     Route: 055
     Dates: start: 20130226

REACTIONS (5)
  - Metastatic gastric cancer [Fatal]
  - Infection [Fatal]
  - Drug interaction [Unknown]
  - Abdominal pain [Fatal]
  - Tumour haemorrhage [Fatal]

NARRATIVE: CASE EVENT DATE: 201901
